FAERS Safety Report 10484837 (Version 2)
Quarter: 2014Q4

REPORT INFORMATION
  Report Type: Spontaneous
  Country: CH (occurrence: CH)
  Receive Date: 20140930
  Receipt Date: 20141120
  Transmission Date: 20150528
  Serious: Yes (Hospitalization, Other)
  Sender: FDA-Public Use
  Company Number: CH-BRISTOL-MYERS SQUIBB COMPANY-21429220

PATIENT
  Age: 78 Year
  Sex: Female

DRUGS (11)
  1. ENALAPRIL [Concomitant]
     Active Substance: ENALAPRIL
  2. CIPROFLOXACIN. [Concomitant]
     Active Substance: CIPROFLOXACIN
  3. PRIMIDONE. [Concomitant]
     Active Substance: PRIMIDONE
  4. TROSPIUM CHLORIDE. [Concomitant]
     Active Substance: TROSPIUM CHLORIDE
  5. BISOPROLOL [Concomitant]
     Active Substance: BISOPROLOL
  6. DIGOXIN. [Concomitant]
     Active Substance: DIGOXIN
  7. ELIQUIS [Suspect]
     Active Substance: APIXABAN
  8. AMIODARONE [Concomitant]
     Active Substance: AMIODARONE
  9. LEVODOPA [Concomitant]
     Active Substance: LEVODOPA
  10. METAMIZOLE [Concomitant]
     Active Substance: METAMIZOLE
  11. TORASEMIDE [Concomitant]
     Active Substance: TORSEMIDE

REACTIONS (3)
  - Pelvic haemorrhage [Unknown]
  - Drug level increased [Unknown]
  - Fall [Unknown]

NARRATIVE: CASE EVENT DATE: 20140808
